FAERS Safety Report 16976120 (Version 1)
Quarter: 2019Q4

REPORT INFORMATION
  Report Type: Spontaneous
  Country: US (occurrence: US)
  Receive Date: 20191030
  Receipt Date: 20191030
  Transmission Date: 20200122
  Serious: Yes (Hospitalization, Other)
  Sender: FDA-Public Use
  Company Number: US-REGENERON PHARMACEUTICALS, INC.-2019-61345

PATIENT

DRUGS (4)
  1. EYLEA [Suspect]
     Active Substance: AFLIBERCEPT
     Indication: RETINAL DETACHMENT
     Dosage: LEFT EYE, EVERY 6-8 WEEKS
     Route: 031
     Dates: start: 201807
  2. EYLEA [Suspect]
     Active Substance: AFLIBERCEPT
     Indication: MACULAR OEDEMA
     Dosage: LEFT EYE, EVERY 6-8 WEEKS, LAST DOSE PRIOR TO EVENT
     Route: 031
     Dates: start: 201908, end: 201908
  3. IRON [Concomitant]
     Active Substance: IRON
     Indication: PRODUCT USED FOR UNKNOWN INDICATION
  4. INSULIN [Concomitant]
     Active Substance: INSULIN NOS
     Indication: PRODUCT USED FOR UNKNOWN INDICATION
     Dosage: UNK

REACTIONS (9)
  - Blood glucose increased [Unknown]
  - Blood iron decreased [Unknown]
  - Cataract [Not Recovered/Not Resolved]
  - Vomiting [Recovered/Resolved]
  - Fear of injection [Unknown]
  - Fatigue [Recovering/Resolving]
  - Influenza like illness [Recovered/Resolved]
  - Drug ineffective [Unknown]
  - Off label use [Unknown]

NARRATIVE: CASE EVENT DATE: 2019
